FAERS Safety Report 4567352-3 (Version None)
Quarter: 2005Q1

REPORT INFORMATION
  Report Type: 
  Country: None (occurrence: None)
  Receive Date: 20050127
  Receipt Date: 20050119
  Transmission Date: 20050727
  Serious: Yes (Other)
  Sender: FDA-Public Use
  Company Number: ERP05000006

PATIENT
  Age: 76 Year
  Sex: Female

DRUGS (10)
  1. ACTONEL [Suspect]
     Indication: OSTEOPOROSIS
     Dosage: 35 MG, 1/WEEK
     Dates: start: 20040901, end: 20041208
  2. CALCICHEW (CALCIUM CARBONATE) [Concomitant]
  3. DICLOFENAC (DICLOFENAC) [Concomitant]
  4. DETRUSITOL (TOLTERODINE L-TARTRATE0 [Concomitant]
  5. DURATEARS (SODIUM CHLORIDE, POTASSIUM CHLORIDE, HYPROMELLOSE, EDETATE [Concomitant]
  6. METHOTREXATE (METOTREXATE0 [Concomitant]
  7. FUROSEMIDE 9FUROSEMIDE0 [Concomitant]
  8. TEMAZEPAM [Concomitant]
  9. ACETAMINOPHEN [Concomitant]
  10. PREDNISOLONE [Concomitant]

REACTIONS (2)
  - CUTANEOUS VASCULITIS [None]
  - RASH [None]
